FAERS Safety Report 10632015 (Version 1)
Quarter: 2014Q4

REPORT INFORMATION
  Report Type: Spontaneous
  Country: IL (occurrence: IL)
  Receive Date: 20141205
  Receipt Date: 20141205
  Transmission Date: 20150529
  Serious: Yes (Hospitalization)
  Sender: FDA-Public Use
  Company Number: IL-ROCHE-1499152

PATIENT
  Age: 24 Year
  Sex: Female

DRUGS (1)
  1. MABTHERA [Suspect]
     Active Substance: RITUXIMAB
     Indication: OFF LABEL USE
     Route: 065

REACTIONS (3)
  - Kidney transplant rejection [Recovered/Resolved]
  - Off label use [Unknown]
  - Antibody test positive [Unknown]
